FAERS Safety Report 5003924-X (Version None)
Quarter: 2006Q2

REPORT INFORMATION
  Report Type: 
  Country: None (occurrence: None)
  Receive Date: 20060517
  Receipt Date: 20060509
  Transmission Date: 20061013
  Serious: Yes (Other)
  Sender: FDA-Public Use
  Company Number: GB-JNJFOC-20060502615

PATIENT
  Sex: Male

DRUGS (2)
  1. REMICADE [Suspect]
     Indication: DRUG USE FOR UNKNOWN INDICATION
     Dosage: 1ST INFUSION
     Route: 042
  2. HYDROCORTISONE [Concomitant]
     Route: 065

REACTIONS (4)
  - ANXIETY [None]
  - EMOTIONAL DISORDER [None]
  - PERSONALITY CHANGE [None]
  - TEARFULNESS [None]
